FAERS Safety Report 6112826-7 (Version None)
Quarter: 2009Q1

REPORT INFORMATION
  Report Type: 
  Country: None (occurrence: None)
  Receive Date: 20090312
  Receipt Date: 20090303
  Transmission Date: 20090719
  Serious: Yes (Hospitalization)
  Sender: FDA-Public Use
  Company Number: DE-ASTRAZENECA-2008PK02542

PATIENT
  Age: 12618 Day
  Sex: Male
  Weight: 97 kg

DRUGS (20)
  1. SEROQUEL [Suspect]
     Indication: SCHIZOAFFECTIVE DISORDER
     Route: 048
     Dates: start: 20080922
  2. SEROQUEL [Interacting]
     Dosage: 75-600 MG
     Route: 048
     Dates: start: 20081024, end: 20081104
  3. SEROQUEL [Interacting]
     Route: 048
     Dates: start: 20081105, end: 20081105
  4. SEROQUEL [Interacting]
     Route: 048
     Dates: start: 20081106, end: 20081106
  5. SEROQUEL [Interacting]
     Route: 048
     Dates: start: 20081107, end: 20081109
  6. SEROQUEL [Interacting]
     Route: 048
     Dates: start: 20081110, end: 20081110
  7. SEROQUEL [Interacting]
     Route: 048
     Dates: start: 20081111, end: 20081111
  8. SEROQUEL [Interacting]
     Route: 048
     Dates: start: 20081112, end: 20081112
  9. SEROQUEL [Interacting]
     Route: 048
     Dates: start: 20081113, end: 20081116
  10. SEROQUEL [Interacting]
     Route: 048
     Dates: start: 20081117, end: 20081118
  11. SEROQUEL [Interacting]
     Route: 048
     Dates: start: 20081119, end: 20081124
  12. SEROQUEL [Interacting]
     Route: 048
     Dates: start: 20081125, end: 20081125
  13. SEROQUEL [Interacting]
     Route: 048
     Dates: start: 20081126, end: 20081126
  14. SEROQUEL [Interacting]
     Route: 048
     Dates: start: 20081127, end: 20081127
  15. SEROQUEL [Interacting]
     Route: 048
     Dates: start: 20081128, end: 20081128
  16. SEROQUEL [Interacting]
     Route: 048
     Dates: start: 20081129, end: 20081129
  17. NEUROCIL [Interacting]
     Indication: SLEEP DISORDER
     Route: 048
     Dates: start: 20081106
  18. LORAZEPAM [Concomitant]
     Indication: ANXIETY
     Dates: start: 20081006, end: 20081118
  19. MIRTAZAPINE [Concomitant]
     Indication: DEPRESSION
     Route: 048
     Dates: start: 20080930
  20. ZYPREXA [Concomitant]
     Indication: SCHIZOPHRENIA
     Route: 048
     Dates: start: 20081008

REACTIONS (4)
  - CONSTIPATION [None]
  - DRUG INTERACTION [None]
  - DYSURIA [None]
  - URINARY RETENTION [None]
